FAERS Safety Report 6709338-6 (Version None)
Quarter: 2010Q2

REPORT INFORMATION
  Report Type: 
  Country: None (occurrence: None)
  Receive Date: 20100504
  Receipt Date: 20100424
  Transmission Date: 20101027
  Serious: Yes (Other)
  Sender: FDA-Public Use
  Company Number: CN-PFIZER INC-2010051954

PATIENT
  Sex: Male

DRUGS (1)
  1. CHAMPIX [Suspect]
     Indication: SMOKING CESSATION THERAPY
     Dosage: UNK
     Route: 048
     Dates: start: 20100303

REACTIONS (5)
  - ABNORMAL DREAMS [None]
  - DRY MOUTH [None]
  - DYSPNOEA [None]
  - HAEMOPTYSIS [None]
  - PRODUCTIVE COUGH [None]
